FAERS Safety Report 10368658 (Version 2)
Quarter: 2014Q3

REPORT INFORMATION
  Report Type: Report from Study
  Country: DE (occurrence: DE)
  Receive Date: 20140807
  Receipt Date: 20140811
  Transmission Date: 20150326
  Serious: Yes (Hospitalization)
  Sender: FDA-Public Use
  Company Number: DE-ASTELLAS-2014EU010390

PATIENT
  Age: 84 Year
  Sex: Male
  Weight: 60 kg

DRUGS (2)
  1. SOLIFENACIN [Suspect]
     Active Substance: SOLIFENACIN
     Indication: HYPERTONIC BLADDER
     Dosage: UNK UNK, ONCE DAILY
     Route: 048
     Dates: start: 20140507, end: 20140603
  2. SOLIFENACIN-MIRABEGRON [Suspect]
     Active Substance: MIRABEGRON\SOLIFENACIN
     Indication: HYPERTONIC BLADDER
     Dosage: UNK UNK, ONCE DAILY
     Route: 048
     Dates: start: 20140604

REACTIONS (1)
  - Polyneuropathy [Recovered/Resolved]

NARRATIVE: CASE EVENT DATE: 20140721
